FAERS Safety Report 23683969 (Version 1)
Quarter: 2024Q1

REPORT INFORMATION
  Report Type: Spontaneous
  Country: US (occurrence: US)
  Receive Date: 20240328
  Receipt Date: 20240328
  Transmission Date: 20240410
  Serious: No
  Sender: FDA-Public Use
  Company Number: US-FreseniusKabi-FK202404883

PATIENT
  Sex: Female

DRUGS (1)
  1. DEXTROSE\MAGNESIUM SULFATE [Suspect]
     Active Substance: DEXTROSE\MAGNESIUM SULFATE
     Indication: Product used for unknown indication
     Dosage: DOSAGE FORM: INJECTION

REACTIONS (2)
  - Skin laceration [Not Recovered/Not Resolved]
  - Wound haemorrhage [Not Recovered/Not Resolved]
